FAERS Safety Report 4750396-6 (Version None)
Quarter: 2005Q3

REPORT INFORMATION
  Report Type: 
  Country: None (occurrence: None)
  Receive Date: 20050818
  Receipt Date: 20050805
  Transmission Date: 20060218
  Serious: Yes (Hospitalization)
  Sender: FDA-Public Use
  Company Number: CIP03001638

PATIENT
  Age: 66 Year
  Sex: Female

DRUGS (12)
  1. RISEDRONATE SODIUM [Suspect]
     Indication: OSTEOPOROSIS
     Dosage: 2.5 MG DAILY, ORAL
     Route: 048
     Dates: start: 20030103, end: 20030403
  2. MEFENAMIC ACID [Suspect]
     Indication: PYREXIA
     Dosage: ORAL
     Route: 048
     Dates: start: 20030310, end: 20030101
  3. ASTHMOYLSIN-M (EPHEDRINE HYDROCHLORIDE, PHENOBARBITAL, PROXYPHLLINE) [Suspect]
     Indication: COUGH
     Dates: start: 20030310, end: 20030101
  4. NIPOLAZIN (MEQITAZINE) [Suspect]
     Indication: COUGH
     Dates: start: 20030310, end: 20030101
  5. PRAVASTATIN [Concomitant]
  6. NEUROTROPIN (ORGAN LYSATE, STANDARDIZED) [Concomitant]
  7. MENATETRENONE (MENATETRENONE) [Concomitant]
  8. SAIREI-TO (HERBAL EXTRACTS NOS) [Concomitant]
  9. CINAL (ASCORBIC ACID, CALCIUM PANTOTHENATE) [Concomitant]
  10. VITAMEDIN CAPSULE (BENFOTIAMNE, CYANOCOBALAMIN, PYRIDOXINE HYDROCHLORI [Concomitant]
  11. GLYCYRON (AMINOACETIC ACID, DL-METHIONINE, GLYCYRRHIZIC ACID) [Concomitant]
  12. GLAKAY (MENATETRENONE) [Concomitant]

REACTIONS (22)
  - ALANINE AMINOTRANSFERASE INCREASED [None]
  - ASPARTATE AMINOTRANSFERASE INCREASED [None]
  - BLOOD ALKALINE PHOSPHATASE INCREASED [None]
  - BLOOD CREATINE PHOSPHOKINASE INCREASED [None]
  - BODY TEMPERATURE INCREASED [None]
  - C-REACTIVE PROTEIN INCREASED [None]
  - CHEST X-RAY ABNORMAL [None]
  - COUGH [None]
  - CRYPTOGENIC ORGANIZING PNEUMONIA [None]
  - EOSINOPHIL COUNT INCREASED [None]
  - HAEMATOCRIT DECREASED [None]
  - HAEMOGLOBIN DECREASED [None]
  - INTERSTITIAL LUNG DISEASE [None]
  - LUNG CONSOLIDATION [None]
  - LYMPHOCYTE COUNT DECREASED [None]
  - LYMPHOCYTE STIMULATION TEST POSITIVE [None]
  - MONOCYTE COUNT INCREASED [None]
  - NEUTROPHIL COUNT INCREASED [None]
  - PLATELET COUNT INCREASED [None]
  - PYREXIA [None]
  - RED BLOOD CELL COUNT INCREASED [None]
  - WHITE BLOOD CELL COUNT INCREASED [None]
